FAERS Safety Report 15407344 (Version 1)
Quarter: 2018Q3

REPORT INFORMATION
  Report Type: Spontaneous
  Country: US (occurrence: US)
  Receive Date: 20180920
  Receipt Date: 20180920
  Transmission Date: 20181010
  Serious: Yes (Other)
  Sender: FDA-Public Use
  Company Number: US-ROCHE-2185717

PATIENT
  Sex: Male

DRUGS (1)
  1. OCREVUS [Suspect]
     Active Substance: OCRELIZUMAB
     Indication: PRODUCT USED FOR UNKNOWN INDICATION
     Dosage: 1ST SPLIT DOSE; ONGOING: NO
     Route: 065
     Dates: start: 20180907

REACTIONS (4)
  - Headache [Unknown]
  - Pain [Unknown]
  - Pyrexia [Unknown]
  - Colitis [Unknown]
